FAERS Safety Report 16273143 (Version 1)
Quarter: 2019Q2

REPORT INFORMATION
  Report Type: Spontaneous
  Country: US (occurrence: US)
  Receive Date: 20190329
  Receipt Date: 20190329
  Transmission Date: 20190711
  Serious: No
  Sender: FDA-Public Use
  Company Number: None

PATIENT
  Age: 42 Year
  Sex: Female

DRUGS (3)
  1. RASUVO [Suspect]
     Active Substance: METHOTREXATE SODIUM
     Indication: TENOSYNOVITIS
  2. RASUVO [Suspect]
     Active Substance: METHOTREXATE SODIUM
     Indication: SYNOVITIS
     Dosage: ?          OTHER STRENGTH:12.5/0.25 M;?
     Route: 058
     Dates: start: 20180403
  3. RASUVO [Suspect]
     Active Substance: METHOTREXATE SODIUM
     Indication: TENOSYNOVITIS
     Dosage: ?          OTHER STRENGTH:12.5/0.25 M;?
     Route: 058
     Dates: start: 20180403

REACTIONS (2)
  - Drug ineffective [None]
  - Hepatic enzyme increased [None]

NARRATIVE: CASE EVENT DATE: 20190301
